FAERS Safety Report 20597499 (Version 6)
Quarter: 2022Q4

REPORT INFORMATION
  Report Type: Report from Study
  Country: PL (occurrence: PL)
  Receive Date: 20220315
  Receipt Date: 20221014
  Transmission Date: 20230113
  Serious: Yes (Death, Hospitalization, Disabling)
  Sender: FDA-Public Use
  Company Number: PL-JNJFOC-20211208243

PATIENT
  Age: 63 Year
  Sex: Male
  Weight: 90 kg

DRUGS (13)
  1. DARATUMUMAB [Suspect]
     Active Substance: DARATUMUMAB
     Indication: Plasma cell myeloma
     Dosage: ALSO REPORTED AS 15ML
     Route: 058
     Dates: start: 20210907, end: 20211117
  2. RAMIPRIL [Concomitant]
     Active Substance: RAMIPRIL
     Indication: Hypertension
     Route: 048
     Dates: start: 20060101
  3. BETALOCZOK [Concomitant]
     Indication: Hypertension
     Route: 048
     Dates: start: 20060101
  4. BISEPTOL [Concomitant]
     Active Substance: SULFAMETHOXAZOLE\TRIMETHOPRIM
     Indication: Prophylaxis
     Dosage: 800/160 MG
     Route: 048
     Dates: start: 20190401
  5. OSTERCAL 1250 D (CALCIUM CARBONATE+VITAMIN D3) 500 MILLIGRAM + 25 MICR [Concomitant]
     Indication: Prophylaxis
     Route: 048
     Dates: start: 20190401
  6. OSTERCAL 1250 D (CALCIUM CARBONATE+VITAMIN D3) 500 MILLIGRAM + 25 MICR [Concomitant]
     Indication: Mineral supplementation
  7. HASCOVIR [Concomitant]
     Indication: Antiviral prophylaxis
     Route: 048
     Dates: start: 20190401
  8. ALLOPURINOL [Concomitant]
     Active Substance: ALLOPURINOL
     Indication: Prophylaxis
     Route: 048
     Dates: start: 20190401
  9. THIAMINE HYDROCHLORIDE, PYRIDOXINE HYDROCHLORIDE AND CYANOCOBALAMIN [Concomitant]
     Indication: Peripheral sensory neuropathy
     Route: 048
     Dates: start: 20200801
  10. TAMSULOSIN HYDROCHLORIDE [Concomitant]
     Active Substance: TAMSULOSIN HYDROCHLORIDE
     Indication: Prostatomegaly
     Route: 048
     Dates: start: 20201201
  11. ESSENTIALE FORTE [Concomitant]
     Indication: Prophylaxis
     Route: 048
     Dates: start: 20210201
  12. ENOXAPARIN SODIUM [Concomitant]
     Active Substance: ENOXAPARIN SODIUM
     Indication: Prophylaxis
     Route: 042
     Dates: start: 20210908
  13. CONTROLOC [Concomitant]
     Active Substance: PANTOPRAZOLE SODIUM
     Indication: Prophylaxis against gastrointestinal ulcer
     Route: 048
     Dates: start: 20210914

REACTIONS (3)
  - Progressive multifocal leukoencephalopathy [Fatal]
  - JC virus infection [Not Recovered/Not Resolved]
  - Ischaemic stroke [Recovered/Resolved with Sequelae]

NARRATIVE: CASE EVENT DATE: 20211128
